FAERS Safety Report 25065046 (Version 1)
Quarter: 2025Q1

REPORT INFORMATION
  Report Type: Spontaneous
  Country: JP (occurrence: JP)
  Receive Date: 20250311
  Receipt Date: 20250311
  Transmission Date: 20250408
  Serious: Yes (Other)
  Sender: ALEXION PHARMACEUTICALS
  Company Number: JP-ASTRAZENECA-202503GLO001458JP

PATIENT
  Age: 50 Year

DRUGS (6)
  1. DURVALUMAB [Suspect]
     Active Substance: DURVALUMAB
     Indication: Gallbladder adenocarcinoma
     Route: 065
  2. DURVALUMAB [Suspect]
     Active Substance: DURVALUMAB
     Indication: Metastases to lung
  3. GEMCITABINE [Concomitant]
     Active Substance: GEMCITABINE
     Indication: Gallbladder adenocarcinoma
     Route: 065
  4. GEMCITABINE [Concomitant]
     Active Substance: GEMCITABINE
     Indication: Metastases to lung
  5. CISPLATIN [Concomitant]
     Active Substance: CISPLATIN
     Indication: Gallbladder adenocarcinoma
     Route: 065
  6. CISPLATIN [Concomitant]
     Active Substance: CISPLATIN
     Indication: Metastases to lung

REACTIONS (3)
  - Cholangitis sclerosing [Unknown]
  - Jaundice [Unknown]
  - Off label use [Unknown]
